FAERS Safety Report 6241583-9 (Version None)
Quarter: 2009Q2

REPORT INFORMATION
  Report Type: 
  Country: None (occurrence: None)
  Receive Date: 20090623
  Receipt Date: 20041014
  Transmission Date: 20091009
  Serious: Yes (Hospitalization)
  Sender: FDA-Public Use
  Company Number: GB-ROCHE-383316

PATIENT
  Sex: Female
  Weight: 60 kg

DRUGS (34)
  1. DACLIZUMAB [Suspect]
     Route: 042
     Dates: start: 20040928
  2. DACLIZUMAB [Suspect]
     Dosage: FOR 4 DOSES AS PER PROTOCOL.
     Route: 042
     Dates: start: 20041011, end: 20041122
  3. MYCOPHENOLATE MOFETIL [Suspect]
     Route: 048
     Dates: start: 20040928
  4. MYCOPHENOLATE MOFETIL [Suspect]
     Route: 048
     Dates: start: 20041027
  5. MYCOPHENOLATE MOFETIL [Suspect]
     Route: 048
     Dates: start: 20060929
  6. MYCOPHENOLATE MOFETIL [Suspect]
     Route: 048
     Dates: start: 20070525
  7. SIROLIMUS [Suspect]
     Route: 048
     Dates: start: 20040928
  8. SIROLIMUS [Suspect]
     Route: 048
     Dates: start: 20041006
  9. SIROLIMUS [Suspect]
     Route: 048
     Dates: start: 20041112
  10. SIROLIMUS [Suspect]
     Route: 048
     Dates: start: 20041218
  11. SIROLIMUS [Suspect]
     Route: 048
     Dates: start: 20050221
  12. SIROLIMUS [Suspect]
     Route: 048
     Dates: start: 20050318
  13. SIROLIMUS [Suspect]
     Route: 048
     Dates: start: 20070525
  14. PREDNISOLONE [Suspect]
     Route: 048
     Dates: start: 20040107
  15. PREDNISOLONE [Suspect]
     Route: 048
     Dates: start: 20040929
  16. PREDNISOLONE [Suspect]
     Dosage: ROUTE: PL
     Route: 048
     Dates: start: 20050221
  17. PREDNISOLONE [Suspect]
     Route: 048
     Dates: start: 20061030
  18. PREDNISOLONE [Suspect]
     Route: 048
     Dates: start: 20070115
  19. PREDNISOLONE [Suspect]
     Route: 048
     Dates: start: 20070416
  20. COTRIMOXAZOLE [Concomitant]
     Route: 048
     Dates: start: 20040928, end: 20050318
  21. ASPIRIN [Concomitant]
     Dosage: START DATE: PRETX
     Route: 048
     Dates: end: 20050318
  22. FLUCONAZOLE [Concomitant]
     Route: 048
     Dates: start: 20041008, end: 20041115
  23. SENOKOT [Concomitant]
  24. LACTULOSE [Concomitant]
  25. ALFACALCIDOL [Concomitant]
     Dosage: DRUG: ALPHACALCIDOL; DOSE DATE: PRETX
     Route: 048
  26. ATORVASTATIN CALCIUM [Concomitant]
     Dosage: DRUG: ATROVASTATIN
     Route: 048
     Dates: start: 20041112, end: 20050606
  27. ATORVASTATIN CALCIUM [Concomitant]
     Route: 048
     Dates: start: 20050710
  28. CEFALEXIN [Concomitant]
     Route: 048
     Dates: start: 20041010, end: 20041017
  29. ENEMAS [Concomitant]
     Route: 050
     Dates: start: 20041105, end: 20041107
  30. ENEMAS [Concomitant]
     Dosage: START DATE REPORTED AS 03-DEC-2994 WHICH SEEMS TO BE A TYPOGRAPHICAL ERROR
     Route: 050
     Dates: start: 20041203, end: 20041205
  31. FRUSEMIDE [Concomitant]
     Route: 048
     Dates: start: 20041003
  32. FRUSEMIDE [Concomitant]
     Dosage: DOSE: 40 OZ
     Route: 048
     Dates: start: 20050912, end: 20060911
  33. LANSOPRAZOLE [Concomitant]
     Route: 048
     Dates: start: 20040930, end: 20050318
  34. NYSTATIN [Concomitant]
     Route: 048
     Dates: start: 20041025, end: 20041027

REACTIONS (7)
  - CONSTIPATION [None]
  - GASTRITIS [None]
  - OESOPHAGEAL CANDIDIASIS [None]
  - OESOPHAGITIS [None]
  - OPPORTUNISTIC INFECTION [None]
  - PYREXIA [None]
  - URINARY TRACT INFECTION [None]
